FAERS Safety Report 4862605-3 (Version None)
Quarter: 2005Q4

REPORT INFORMATION
  Report Type: 
  Country: None (occurrence: None)
  Receive Date: 20051221
  Receipt Date: 20051209
  Transmission Date: 20060501
  Serious: Yes (Hospitalization)
  Sender: FDA-Public Use
  Company Number: FR-ROCHE-427902

PATIENT
  Age: 71 Year
  Sex: Female

DRUGS (9)
  1. NAPROSYN [Suspect]
     Indication: RHEUMATOID ARTHRITIS
     Route: 048
     Dates: end: 20051102
  2. REMICADE [Suspect]
     Indication: RHEUMATOID ARTHRITIS
     Route: 065
     Dates: start: 20000324
  3. NOVATREX [Suspect]
     Indication: RHEUMATOID ARTHRITIS
     Route: 048
  4. SPECIAFOLDINE [Concomitant]
  5. MOPRAL [Concomitant]
  6. ACTONEL [Concomitant]
  7. IDEOS [Concomitant]
  8. ZALDIAR [Concomitant]
  9. LOZOL [Concomitant]

REACTIONS (2)
  - GASTROINTESTINAL NECROSIS [None]
  - PERITONITIS [None]
